FAERS Safety Report 4980004-0 (Version None)
Quarter: 2006Q2

REPORT INFORMATION
  Report Type: 
  Country: None (occurrence: None)
  Receive Date: 20060421
  Receipt Date: 20031013
  Transmission Date: 20061013
  Serious: Yes (Hospitalization)
  Sender: FDA-Public Use
  Company Number: US-MERCK-0310USA01521

PATIENT
  Age: 49 Year
  Sex: Male
  Weight: 82 kg

DRUGS (2)
  1. VIOXX [Suspect]
     Indication: ARTHRALGIA
     Route: 048
     Dates: start: 20010215, end: 20010421
  2. VIOXX [Suspect]
     Indication: OSTEOARTHRITIS
     Route: 048
     Dates: start: 20010215, end: 20010421

REACTIONS (21)
  - ABDOMINAL PAIN [None]
  - ANAEMIA [None]
  - ANXIETY [None]
  - ARTERIOSCLEROSIS CORONARY ARTERY [None]
  - ARTHROPATHY [None]
  - AZOTAEMIA [None]
  - BLOOD BILIRUBIN INCREASED [None]
  - CARDIAC VALVE DISEASE [None]
  - CHANGE OF BOWEL HABIT [None]
  - CHEST PAIN [None]
  - CORONARY ARTERY OCCLUSION [None]
  - DYSPNOEA [None]
  - HAEMORRHOIDS [None]
  - HAND FRACTURE [None]
  - HEART VALVE INSUFFICIENCY [None]
  - MYOCARDIAL INFARCTION [None]
  - PNEUMONIA ASPIRATION [None]
  - RECTAL HAEMORRHAGE [None]
  - RENAL FAILURE [None]
  - VENTRICULAR HYPERTROPHY [None]
  - VISUAL DISTURBANCE [None]
